FAERS Safety Report 20849711 (Version 1)
Quarter: 2022Q2

REPORT INFORMATION
  Report Type: Spontaneous
  Country: RO (occurrence: RO)
  Receive Date: 20220519
  Receipt Date: 20220519
  Transmission Date: 20220721
  Serious: Yes (Death, Other)
  Sender: FDA-Public Use
  Company Number: RO-SLATE RUN PHARMACEUTICALS-22RO001091

PATIENT

DRUGS (10)
  1. VANCOMYCIN HYDROCHLORIDE [Suspect]
     Active Substance: VANCOMYCIN HYDROCHLORIDE
     Indication: Clostridium difficile colitis
     Dosage: 1 GRAM
     Route: 048
  2. VANCOMYCIN HYDROCHLORIDE [Suspect]
     Active Substance: VANCOMYCIN HYDROCHLORIDE
     Dosage: 30 MILLIGRAM PER KILOGRAM, QD
     Route: 042
  3. AMPICILLIN [Suspect]
     Active Substance: AMPICILLIN
     Indication: Clostridium difficile colitis
     Dosage: 200 MILLIGRAM PER KILOGRAM, QD
     Route: 042
  4. GENTAMICIN [Suspect]
     Active Substance: GENTAMICIN
     Indication: Clostridium difficile colitis
     Dosage: 3 MILLIGRAM PER KILOGRAM, QD
     Route: 042
  5. UNSPECIFIED INGREDIENT [Concomitant]
     Active Substance: UNSPECIFIED INGREDIENT
     Indication: Endocarditis
     Route: 042
  6. UNSPECIFIED INGREDIENT [Concomitant]
     Active Substance: UNSPECIFIED INGREDIENT
     Indication: Endocarditis
     Route: 042
  7. BETA BLOCKING AGENTS AND CALCIUM CHANNEL BLOCKERS [Concomitant]
     Indication: Cardiac failure
  8. BETA BLOCKING AGENTS AND CALCIUM CHANNEL BLOCKERS [Concomitant]
     Indication: Dyspnoea exertional
  9. UNSPECIFIED INGREDIENT [Concomitant]
     Active Substance: UNSPECIFIED INGREDIENT
     Indication: Cardiac failure
  10. UNSPECIFIED INGREDIENT [Concomitant]
     Active Substance: UNSPECIFIED INGREDIENT
     Indication: Dyspnoea exertional

REACTIONS (9)
  - Death [Fatal]
  - Cardiac failure [Unknown]
  - Dyspnoea paroxysmal nocturnal [Unknown]
  - Pleural effusion [Unknown]
  - Splenic lesion [Unknown]
  - Septic embolus [Unknown]
  - Intracardiac mass [Unknown]
  - Cerebrovascular accident [Unknown]
  - Treatment failure [Unknown]
